FAERS Safety Report 13933357 (Version 1)
Quarter: 2017Q3

REPORT INFORMATION
  Report Type: Spontaneous
  Country: US (occurrence: US)
  Receive Date: 20170904
  Receipt Date: 20170904
  Transmission Date: 20171127
  Serious: No
  Sender: FDA-Public Use
  Company Number: US-TOLMAR, INC.-2017US002070

PATIENT
  Age: 65 Year
  Sex: Male

DRUGS (6)
  1. ELIGARD [Suspect]
     Active Substance: LEUPROLIDE ACETATE
     Dosage: 45 MG, EVERY 6 MONTHS
     Route: 058
     Dates: start: 20160915
  2. ELIGARD [Suspect]
     Active Substance: LEUPROLIDE ACETATE
     Indication: PROSTATE CANCER
     Dosage: 45 MG, EVERY 6 MONTHS
     Route: 058
     Dates: start: 20160310
  3. GINGER                             /01646602/ [Concomitant]
  4. GINKGO                             /01003101/ [Concomitant]
  5. BICALUTAMIDE. [Concomitant]
     Active Substance: BICALUTAMIDE
  6. GARLIC                             /01570501/ [Concomitant]
     Active Substance: GARLIC

REACTIONS (3)
  - Libido increased [Unknown]
  - Drug ineffective [Unknown]
  - Prostatic specific antigen increased [Unknown]

NARRATIVE: CASE EVENT DATE: 201702
